FAERS Safety Report 25375118 (Version 1)
Quarter: 2025Q2

REPORT INFORMATION
  Report Type: Spontaneous
  Country: US (occurrence: US)
  Receive Date: 20250529
  Receipt Date: 20250529
  Transmission Date: 20250717
  Serious: No
  Sender: CIPLA
  Company Number: US-CIPLA LTD.-2025US01964

PATIENT

DRUGS (7)
  1. ALBUTEROL [Suspect]
     Active Substance: ALBUTEROL
     Indication: Wheezing
     Route: 065
     Dates: start: 20250205
  2. ATORVASTATIN [Concomitant]
     Active Substance: ATORVASTATIN
     Indication: Blood cholesterol abnormal
     Dosage: 80 MILLIGRAM, QD
     Route: 065
     Dates: start: 2004
  3. FAMOTIDINE [Concomitant]
     Active Substance: FAMOTIDINE
     Indication: Product used for unknown indication
     Dosage: 40 MILLIGRAM, QD
     Route: 065
  4. SPIRONOLACTONE [Concomitant]
     Active Substance: SPIRONOLACTONE
     Indication: Alopecia
     Dosage: 100 MILLIGRAM, BID (STARTED USING BEFORE YEAR AND HALF)
     Route: 065
     Dates: start: 2023
  5. DOMPERIDONE [Concomitant]
     Active Substance: DOMPERIDONE
     Indication: Product used for unknown indication
     Dosage: 4 MILLIGRAM, QD
     Route: 065
     Dates: start: 2013
  6. MONTELUKAST [Concomitant]
     Active Substance: MONTELUKAST
     Indication: Sinusitis
     Dosage: 10 MILLIGRAM, QD
     Route: 065
     Dates: start: 2023
  7. VENLAFAXINE [Concomitant]
     Active Substance: VENLAFAXINE HYDROCHLORIDE
     Indication: Depression
     Dosage: 150 MILLIGRAM, QD
     Route: 065
     Dates: start: 2004

REACTIONS (2)
  - Drug dose omission by device [Unknown]
  - Device delivery system issue [Unknown]

NARRATIVE: CASE EVENT DATE: 20250205
